FAERS Safety Report 14622771 (Version 1)
Quarter: 2018Q1

REPORT INFORMATION
  Report Type: Spontaneous
  Country: US (occurrence: US)
  Receive Date: 20180311
  Receipt Date: 20180311
  Transmission Date: 20180509
  Serious: No
  Sender: FDA-Public Use
  Company Number: US-BIOGEN-2018BI00533829

PATIENT
  Sex: Female

DRUGS (1)
  1. AVONEX [Suspect]
     Active Substance: INTERFERON BETA-1A
     Indication: MULTIPLE SCLEROSIS
     Route: 065

REACTIONS (7)
  - General physical health deterioration [Unknown]
  - Malaise [Unknown]
  - Eye pain [Unknown]
  - Mood swings [Unknown]
  - Pain [Unknown]
  - Back pain [Unknown]
  - Fatigue [Unknown]
